FAERS Safety Report 5541448-1 (Version None)
Quarter: 2007Q4

REPORT INFORMATION
  Report Type: 
  Country: None (occurrence: None)
  Receive Date: 20071210
  Receipt Date: 20071129
  Transmission Date: 20080405
  Serious: Yes (Hospitalization)
  Sender: FDA-Public Use
  Company Number: US-JNJFOC-20071200743

PATIENT
  Sex: Male
  Weight: 95.9 kg

DRUGS (7)
  1. DOXORUBICIN HCL [Suspect]
     Indication: T-CELL LYMPHOMA
     Dosage: 1 DOSE ON DAY 2 OF 21 DAY CYCLE
     Route: 042
  2. CIPROFLOXACIN [Concomitant]
     Route: 065
  3. VALTREX [Concomitant]
     Route: 065
  4. NEUPOGEN [Concomitant]
     Route: 065
  5. NYSTATIN [Concomitant]
     Route: 065
  6. MAGNESIUM OXIDE [Concomitant]
     Route: 048
  7. PANTOPRAZOLE SODIUM [Concomitant]
     Route: 048

REACTIONS (6)
  - CATHETER SITE INFECTION [None]
  - EMBOLISM [None]
  - HAEMOGLOBIN [None]
  - NEUTROPHIL COUNT ABNORMAL [None]
  - PLATELET DISORDER [None]
  - WHITE BLOOD CELL DISORDER [None]
